FAERS Safety Report 10266736 (Version 3)
Quarter: 2014Q3

REPORT INFORMATION
  Report Type: Spontaneous
  Country: IL (occurrence: IL)
  Receive Date: 20140630
  Receipt Date: 20140818
  Transmission Date: 20150326
  Serious: Yes (Other)
  Sender: FDA-Public Use
  Company Number: IL-AMGEN INC.-ISRSP2014041937

PATIENT
  Sex: Female

DRUGS (2)
  1. ENBREL [Suspect]
     Active Substance: ETANERCEPT
     Dosage: UNK
     Route: 065
  2. ENBREL [Suspect]
     Active Substance: ETANERCEPT
     Indication: PRODUCT USED FOR UNKNOWN INDICATION
     Dosage: UNK
     Route: 065

REACTIONS (8)
  - Injection site haemorrhage [Unknown]
  - Hypersensitivity [Unknown]
  - Epistaxis [Not Recovered/Not Resolved]
  - Pharyngitis bacterial [Unknown]
  - Pruritus [Unknown]
  - Coagulopathy [Unknown]
  - Pain in extremity [Not Recovered/Not Resolved]
  - Haematoma [Unknown]
